FAERS Safety Report 17021070 (Version 1)
Quarter: 2019Q4

REPORT INFORMATION
  Report Type: Spontaneous
  Country: US (occurrence: US)
  Receive Date: 20191112
  Receipt Date: 20191112
  Transmission Date: 20200122
  Serious: Yes (Hospitalization, Other)
  Sender: FDA-Public Use
  Company Number: US-GLAXOSMITHKLINE-US2019GSK203345

PATIENT
  Age: 15 Year
  Sex: Female
  Weight: 67 kg

DRUGS (1)
  1. BUPROPION. [Suspect]
     Active Substance: BUPROPION
     Indication: PRODUCT USED FOR UNKNOWN INDICATION
     Dosage: 1650 TO 9000 MG
     Route: 048

REACTIONS (7)
  - Somnolence [Recovered/Resolved]
  - Acidosis [Recovered/Resolved]
  - Generalised tonic-clonic seizure [Recovered/Resolved]
  - Tachycardia [Recovered/Resolved]
  - Intentional overdose [Unknown]
  - Vomiting [Recovered/Resolved]
  - Toxicity to various agents [Recovered/Resolved]
